FAERS Safety Report 4484980-4 (Version None)
Quarter: 2004Q3

REPORT INFORMATION
  Report Type: 
  Country: None (occurrence: None)
  Receive Date: 20040921
  Receipt Date: 20040428
  Transmission Date: 20050211
  Serious: Yes (Hospitalization, Disabling)
  Sender: FDA-Public Use
  Company Number: 163-20785-03100064

PATIENT
  Age: 57 Year
  Sex: Male

DRUGS (6)
  1. THALOMID [Suspect]
     Indication: METASTASES TO BONE
     Dosage: 200 MG, DAILY, ORAL
     Route: 048
     Dates: start: 20030807, end: 20030901
  2. THALOMID [Suspect]
     Indication: RENAL CELL CARCINOMA STAGE UNSPECIFIED
     Dosage: 200 MG, DAILY, ORAL
     Route: 048
     Dates: start: 20030807, end: 20030901
  3. THALOMID [Suspect]
     Indication: METASTASES TO BONE
     Dosage: 200 MG, DAILY, ORAL
     Route: 048
     Dates: start: 20031001, end: 20040427
  4. THALOMID [Suspect]
     Indication: RENAL CELL CARCINOMA STAGE UNSPECIFIED
     Dosage: 200 MG, DAILY, ORAL
     Route: 048
     Dates: start: 20031001, end: 20040427
  5. ZOMETA [Concomitant]
  6. VENOFER [Concomitant]

REACTIONS (3)
  - INTRACARDIAC THROMBUS [None]
  - NEUROPATHY PERIPHERAL [None]
  - OEDEMA PERIPHERAL [None]
